FAERS Safety Report 7120626 (Version 3)
Quarter: 2013Q3

REPORT INFORMATION
  Report Type: Report from Study
  Country: US (occurrence: US)
  Receive Date: 20090919
  Receipt Date: 20130903
  Transmission Date: 20140515
  Serious: Yes (Hospitalization, Other)
  Sender: FDA-Public Use
  Company Number: US-ABBOTT-09P-163-0583762-00

PATIENT
  Age: 22 Year
  Sex: Female
  Weight: 54.48 kg

DRUGS (6)
  1. HUMIRA [Suspect]
     Indication: CROHN^S DISEASE
     Dosage: DAY 1
     Dates: start: 20090707, end: 20090707
  2. HUMIRA [Suspect]
     Indication: CROHN^S DISEASE
     Dosage: INCONSISTENT USE, ORDERED EVERY 2 WEEKS
     Dates: start: 2009
  3. HUMIRA [Suspect]
     Dates: start: 201008, end: 201303
  4. HUMIRA [Suspect]
     Route: 058
     Dates: start: 201303, end: 201306
  5. B 12 [Concomitant]
     Indication: PRODUCT USED FOR UNKNOWN INDICATION
  6. IRON [Concomitant]
     Indication: PRODUCT USED FOR UNKNOWN INDICATION

REACTIONS (12)
  - Gastrointestinal disorder [Recovered/Resolved]
  - Crohn^s disease [Recovered/Resolved]
  - Pain [Recovered/Resolved]
  - Vomiting [Recovered/Resolved]
  - Abscess intestinal [Recovered/Resolved]
  - Injection site pain [Not Recovered/Not Resolved]
  - Weight decreased [Not Recovered/Not Resolved]
  - Treatment noncompliance [Not Recovered/Not Resolved]
  - Stress [Not Recovered/Not Resolved]
  - Abdominal pain [Recovered/Resolved]
  - Acne [Recovered/Resolved]
  - Injection site pain [Not Recovered/Not Resolved]
